FAERS Safety Report 20492586 (Version 3)
Quarter: 2022Q1

REPORT INFORMATION
  Report Type: Spontaneous
  Country: ES (occurrence: ES)
  Receive Date: 20220219
  Receipt Date: 20220323
  Transmission Date: 20220423
  Serious: Yes (Other)
  Sender: FDA-Public Use
  Company Number: ES-SA-SAC20220204000492

PATIENT
  Age: 72 Year
  Sex: Male

DRUGS (8)
  1. METFORMIN [Suspect]
     Active Substance: METFORMIN HYDROCHLORIDE
     Indication: Type 2 diabetes mellitus
     Dosage: UNK
     Route: 048
  2. INSULIN GLARGINE [Suspect]
     Active Substance: INSULIN GLARGINE
     Indication: Type 2 diabetes mellitus
     Dosage: 10 INTERNATIONAL UNIT
     Route: 065
     Dates: start: 2021
  3. INSULIN GLARGINE [Suspect]
     Active Substance: INSULIN GLARGINE
     Dosage: 14 INTERNATIONAL UNIT
     Route: 058
     Dates: start: 2021
  4. INSULIN HUMAN [Suspect]
     Active Substance: INSULIN HUMAN
     Indication: Type 2 diabetes mellitus
     Dosage: UNK UNK, 3 TIMES A DAY (DOSE: 11-11-10)
     Route: 058
  5. INSULIN HUMAN [Suspect]
     Active Substance: INSULIN HUMAN
     Dosage: UNK UNK, 3 TIMES A DAY (DOSE:8-8-8)
     Route: 065
  6. FIASP [Concomitant]
     Active Substance: INSULIN ASPART
     Indication: Hypoglycaemia
     Dosage: 6 INTERNATIONAL UNIT, ONCE A DAY (AT NIGHT)
     Route: 065
  7. FIASP [Concomitant]
     Active Substance: INSULIN ASPART
     Dosage: 10 INTERNATIONAL UNIT, ONCE A DAY (AT NIGHT)
     Route: 065
  8. CARBOHYDRATES [Concomitant]
     Active Substance: CARBOHYDRATES
     Indication: Hypoglycaemia
     Dosage: UNK
     Route: 065

REACTIONS (5)
  - Hypoglycaemia [Recovered/Resolved]
  - Hyperglycaemia [Recovering/Resolving]
  - Somnolence [Recovering/Resolving]
  - Condition aggravated [Recovering/Resolving]
  - Product selection error [Unknown]
